FAERS Safety Report 25367020 (Version 1)
Quarter: 2025Q2

REPORT INFORMATION
  Report Type: Spontaneous
  Country: US (occurrence: US)
  Receive Date: 20250528
  Receipt Date: 20250528
  Transmission Date: 20250717
  Serious: No
  Sender: Steriscience PTE
  Company Number: US-STERISCIENCE B.V.-2024-ST-001601

PATIENT
  Age: 61 Year
  Sex: Male

DRUGS (6)
  1. METOPROLOL [Suspect]
     Active Substance: METOPROLOL
     Indication: Atrial fibrillation
     Route: 042
  2. ADENOSINE [Concomitant]
     Active Substance: ADENOSINE
     Indication: Atrial fibrillation
     Route: 065
  3. ADENOSINE [Concomitant]
     Active Substance: ADENOSINE
     Route: 065
  4. ADENOSINE [Concomitant]
     Active Substance: ADENOSINE
     Route: 065
  5. AMIODARONE [Concomitant]
     Active Substance: AMIODARONE
     Indication: Atrial fibrillation
     Route: 065
  6. THEOPHYLLINE [Concomitant]
     Active Substance: THEOPHYLLINE
     Indication: Chronic obstructive pulmonary disease
     Route: 065

REACTIONS (1)
  - Off label use [Unknown]
